FAERS Safety Report 11348468 (Version 1)
Quarter: 2015Q3

REPORT INFORMATION
  Report Type: Spontaneous
  Country: DE (occurrence: DE)
  Receive Date: 20150806
  Receipt Date: 20150806
  Transmission Date: 20151125
  Serious: Yes (Life-Threatening)
  Sender: FDA-Public Use
  Company Number: DE-TEVA-582743GER

PATIENT
  Age: 53 Year
  Sex: Male

DRUGS (9)
  1. CONCOR [Concomitant]
     Active Substance: BISOPROLOL FUMARATE
     Dosage: 10 MILLIGRAM DAILY; PERMANENT MEDICATION
  2. ESIDRIX [Concomitant]
     Active Substance: HYDROCHLOROTHIAZIDE
     Dosage: 25 MILLIGRAM DAILY; PERMANENT MEDICATION
  3. ERGENYL CHRONO [Concomitant]
     Active Substance: VALPROIC ACID
     Dosage: 1 DOSAGE FORMS DAILY; 1000 / PERMANENT MEDICATION
  4. CITALOPRAM [Suspect]
     Active Substance: CITALOPRAM HYDROBROMIDE
     Dosage: 40 MILLIGRAM DAILY; PERMANENT MEDICATION
  5. ATACAND [Concomitant]
     Active Substance: CANDESARTAN CILEXETIL
     Dosage: 32 MILLIGRAM DAILY; PERMANENT MEDICATION
  6. BAYOTENSIN [Concomitant]
     Dosage: 40 MILLIGRAM DAILY; PERMANENT MEDICATION
  7. CIATYL Z [Interacting]
     Active Substance: ZUCLOPENTHIXOL ACETATE
     Dates: start: 20090828
  8. MOXONIDIN [Concomitant]
     Active Substance: MOXONIDINE
     Dosage: 1 DOSAGE FORMS DAILY; 0.2 / PERMANENT MEDICATION
  9. ALLOPURINOL. [Concomitant]
     Active Substance: ALLOPURINOL
     Dosage: 150 MILLIGRAM DAILY; PERMANENT MEDICATION

REACTIONS (2)
  - Respiratory failure [Not Recovered/Not Resolved]
  - Drug interaction [Unknown]

NARRATIVE: CASE EVENT DATE: 20090924
